FAERS Safety Report 4677539-7 (Version None)
Quarter: 2005Q2

REPORT INFORMATION
  Report Type: 
  Country: None (occurrence: None)
  Receive Date: 20050526
  Receipt Date: 20050526
  Transmission Date: 20051028
  Serious: Yes (Hospitalization)
  Sender: FDA-Public Use
  Company Number: None

PATIENT
  Age: 56 Year
  Sex: Male
  Weight: 89.6 kg

DRUGS (20)
  1. ALEMTUZAMAB   30 MG [Suspect]
  2. ASPIRIN [Concomitant]
  3. LIPITOR [Concomitant]
  4. ARANESP [Concomitant]
  5. CALCIUM GLUCONATE [Concomitant]
  6. SODIUM BICARB [Concomitant]
  7. COLACE [Concomitant]
  8. LANTUS [Concomitant]
  9. VITAMIN E [Concomitant]
  10. NOVOLOG [Concomitant]
  11. PREDNISONE TAB [Concomitant]
  12. BACTRIM [Concomitant]
  13. VALCYTE [Concomitant]
  14. LASIX [Concomitant]
  15. QUININE SULFATE [Concomitant]
  16. AMBIEN [Concomitant]
  17. RAPAMUNE [Concomitant]
  18. MYCELEX [Concomitant]
  19. ATENOLOL [Concomitant]
  20. TUMS [Concomitant]

REACTIONS (5)
  - ANAEMIA [None]
  - DEHYDRATION [None]
  - ESCHERICHIA URINARY TRACT INFECTION [None]
  - PANCREATITIS [None]
  - VOMITING [None]
